FAERS Safety Report 4326017-3 (Version None)
Quarter: 2004Q1

REPORT INFORMATION
  Report Type: 
  Country: None (occurrence: None)
  Receive Date: 20040323
  Receipt Date: 20040310
  Transmission Date: 20041129
  Serious: Yes (Other)
  Sender: FDA-Public Use
  Company Number: HQWYE605910SEP03

PATIENT
  Age: 58 Year
  Sex: Female

DRUGS (26)
  1. METOCLOPRAMIDE [Suspect]
     Indication: GASTROOESOPHAGEAL REFLUX DISEASE
     Dosage: (ESI LEDERLE), ORAL
     Route: 048
     Dates: start: 19981027, end: 20011112
  2. METOCLOPRAMIDE [Suspect]
     Indication: GASTROOESOPHAGEAL REFLUX DISEASE
     Dosage: SEE IMAGE
     Route: 048
     Dates: start: 19980215, end: 19980101
  3. METOCLOPRAMIDE [Suspect]
     Indication: GASTROOESOPHAGEAL REFLUX DISEASE
     Dosage: SEE IMAGE
     Route: 048
     Dates: start: 20011113, end: 20020102
  4. METOCLOPRAMIDE [Suspect]
     Indication: GASTROOESOPHAGEAL REFLUX DISEASE
     Dosage: SEE IMAGE
     Route: 048
     Dates: start: 20020103, end: 20020409
  5. REGLAN [Suspect]
     Indication: GASTROOESOPHAGEAL REFLUX DISEASE
     Dosage: ORAL
     Route: 048
  6. ZANTAC [Concomitant]
  7. DRIXORAL (DEXBROMPHENIRAMINE MALEATE/PSEUDOEPHEDRINE SULFATE) [Concomitant]
  8. BAYER CHILDREN'S ASPIRIN (ACETYLSALICYLIC ACID) [Concomitant]
  9. ATIVAN [Concomitant]
  10. LITHOBID [Concomitant]
  11. PREMARIN [Concomitant]
  12. SENOKOT [Concomitant]
  13. HUMALOG [Concomitant]
  14. EFFEXOR XR [Concomitant]
  15. VERELAN (VERAPAMIL HYDROCHLORIDE) [Concomitant]
  16. PROCARDIA XL [Concomitant]
  17. LANTUS [Concomitant]
  18. PREVACID [Concomitant]
  19. ZOLOFT [Concomitant]
  20. DETROL [Concomitant]
  21. NEURONTIN [Concomitant]
  22. CIPRO [Concomitant]
  23. ALTACE [Concomitant]
  24. PRANDIN [Concomitant]
  25. MAALOX (ALUMINUM HYDROXIDE GEL/MAGNESIUM HYDROXIDE) [Concomitant]
  26. BENTYL [Concomitant]

REACTIONS (25)
  - ABDOMINAL PAIN [None]
  - ASTHENIA [None]
  - BURNING SENSATION [None]
  - CEREBROVASCULAR ACCIDENT [None]
  - DIABETIC GASTROPARESIS [None]
  - DIABETIC NEUROPATHY [None]
  - DRUG EFFECT DECREASED [None]
  - DRY MOUTH [None]
  - DYSARTHRIA [None]
  - DYSPHAGIA [None]
  - DYSTONIA [None]
  - ESSENTIAL TREMOR [None]
  - FALL [None]
  - FATIGUE [None]
  - GASTRIC POLYPS [None]
  - GASTROOESOPHAGEAL REFLUX DISEASE [None]
  - HALLUCINATION [None]
  - HYPERAESTHESIA [None]
  - HYPERSOMNIA [None]
  - INSOMNIA [None]
  - SOCIAL AVOIDANT BEHAVIOUR [None]
  - TARDIVE DYSKINESIA [None]
  - THROAT TIGHTNESS [None]
  - TONGUE BITING [None]
  - TRANSIENT ISCHAEMIC ATTACK [None]
